FAERS Safety Report 8936757 (Version 3)
Quarter: 2013Q1

REPORT INFORMATION
  Report Type: Report from Study
  Country: FR (occurrence: FR)
  Receive Date: 20121130
  Receipt Date: 20130219
  Transmission Date: 20140127
  Serious: Yes (Death, Hospitalization)
  Sender: FDA-Public Use
  Company Number: FR-SANOFI-AVENTIS-2012SA086210

PATIENT
  Age: 69 Year
  Sex: Male

DRUGS (10)
  1. DOCETAXEL [Suspect]
     Indication: NON-SMALL CELL LUNG CANCER
     Route: 042
     Dates: start: 20120830, end: 20121120
  2. ERLOTINIB [Suspect]
     Indication: NON-SMALL CELL LUNG CANCER
     Route: 048
     Dates: start: 20120831, end: 20121120
  3. LOXEN [Concomitant]
     Dates: start: 20120426
  4. KARDEGIC [Concomitant]
     Dates: start: 20120426
  5. ALLOPURINOL [Concomitant]
     Dates: start: 20120426
  6. PARIET [Concomitant]
     Dates: start: 20120516
  7. TRIATEC [Concomitant]
     Dates: start: 20120425
  8. XANAX [Concomitant]
     Dates: start: 20120606
  9. LOVENOX [Concomitant]
     Dates: start: 20120830
  10. PARACETAMOL [Concomitant]
     Dates: start: 20120426

REACTIONS (3)
  - General physical health deterioration [Recovered/Resolved with Sequelae]
  - Anaemia [Recovered/Resolved with Sequelae]
  - General physical health deterioration [Fatal]
